FAERS Safety Report 11693582 (Version 2)
Quarter: 2015Q4

REPORT INFORMATION
  Report Type: Spontaneous
  Country: IN (occurrence: IN)
  Receive Date: 20151103
  Receipt Date: 20151223
  Transmission Date: 20160304
  Serious: Yes (Other)
  Sender: FDA-Public Use
  Company Number: IN-MEDA-2015100110

PATIENT
  Age: 49 Year
  Sex: Male

DRUGS (5)
  1. TORSEMIDE. [Suspect]
     Active Substance: TORSEMIDE
     Indication: CHRONIC KIDNEY DISEASE
  2. CALCIUM ACETATE. [Concomitant]
     Active Substance: CALCIUM ACETATE
     Indication: CHRONIC KIDNEY DISEASE
  3. CLINIDIPINE [Concomitant]
     Active Substance: CILNIDIPINE
     Indication: CHRONIC KIDNEY DISEASE
  4. FERROUS ASCORBATE [Concomitant]
     Indication: CHRONIC KIDNEY DISEASE
  5. PARICALCITOL. [Concomitant]
     Active Substance: PARICALCITOL
     Indication: CHRONIC KIDNEY DISEASE

REACTIONS (2)
  - Post inflammatory pigmentation change [Recovering/Resolving]
  - Pseudoporphyria [Recovered/Resolved]
